FAERS Safety Report 17052348 (Version 1)
Quarter: 2019Q4

REPORT INFORMATION
  Report Type: Spontaneous
  Country: DE (occurrence: DE)
  Receive Date: 20191120
  Receipt Date: 20191120
  Transmission Date: 20200122
  Serious: Yes (Hospitalization)
  Sender: FDA-Public Use
  Company Number: DE-TORRENT-00015937

PATIENT
  Age: 54 Year
  Sex: Male

DRUGS (1)
  1. METFORMIN [Suspect]
     Active Substance: METFORMIN HYDROCHLORIDE
     Indication: PRODUCT USED FOR UNKNOWN INDICATION
     Dosage: UNKNOWN

REACTIONS (6)
  - Metabolic acidosis [Unknown]
  - Acute respiratory distress syndrome [Unknown]
  - Laparotomy [Unknown]
  - Abdominal compartment syndrome [Unknown]
  - Lactic acidosis [Unknown]
  - Acute kidney injury [Unknown]
